FAERS Safety Report 22044663 (Version 2)
Quarter: 2023Q4

REPORT INFORMATION
  Report Type: Spontaneous
  Country: GB (occurrence: GB)
  Receive Date: 20230228
  Receipt Date: 20231005
  Transmission Date: 20240110
  Serious: Yes (Other)
  Sender: FDA-Public Use
  Company Number: GB-PFIZER INC-202300071451

PATIENT
  Age: 49 Year
  Sex: Male

DRUGS (3)
  1. DEPO-MEDROL [Suspect]
     Active Substance: METHYLPREDNISOLONE ACETATE
     Indication: Cervical radiculopathy
     Dosage: 120 MG, 3 ML
     Route: 008
  2. POLYETHYLENE GLYCOLS [Suspect]
     Active Substance: POLYETHYLENE GLYCOLS
     Route: 008
  3. LIDOCAINE [Concomitant]
     Active Substance: LIDOCAINE
     Dosage: 2 ML
     Route: 008

REACTIONS (3)
  - Toxic neuropathy [Recovered/Resolved]
  - Neuralgia [Recovered/Resolved]
  - Off label use [Unknown]
